FAERS Safety Report 7962348-3 (Version None)
Quarter: 2011Q4

REPORT INFORMATION
  Report Type: 
  Country: None (occurrence: None)
  Receive Date: 20111207
  Receipt Date: 20111130
  Transmission Date: 20120403
  Serious: Yes (Hospitalization, Other)
  Sender: FDA-Public Use
  Company Number: US-MERCK-1110USA01843

PATIENT
  Age: 88 Year
  Sex: Female

DRUGS (7)
  1. ALENDRONATE SODIUM [Suspect]
     Indication: OSTEOPOROSIS
     Route: 048
     Dates: start: 20090501, end: 20100227
  2. VITAMINS (UNSPECIFIED) [Concomitant]
     Route: 065
     Dates: start: 19900101, end: 20100101
  3. ASPIRIN [Suspect]
     Route: 065
     Dates: end: 20100227
  4. PLAVIX [Suspect]
     Route: 065
     Dates: end: 20100227
  5. FOSAMAX [Suspect]
     Indication: OSTEOPOROSIS
     Route: 048
     Dates: start: 19980901, end: 20010101
  6. SYNTHROID [Concomitant]
     Indication: HYPOTHYROIDISM
     Route: 065
  7. FOSAMAX [Suspect]
     Route: 048
     Dates: start: 20010501, end: 20050401

REACTIONS (55)
  - CARDIAC FAILURE CONGESTIVE [None]
  - DEHYDRATION [None]
  - UPPER GASTROINTESTINAL HAEMORRHAGE [None]
  - DIAPHRAGMATIC HERNIA [None]
  - ASTHENIA [None]
  - ALLERGIC SINUSITIS [None]
  - SCOLIOSIS [None]
  - ROAD TRAFFIC ACCIDENT [None]
  - PNEUMONIA ASPIRATION [None]
  - HAEMATOMA [None]
  - ASTHMA [None]
  - BLISTER [None]
  - HAEMORRHAGIC ANAEMIA [None]
  - ACUTE PRERENAL FAILURE [None]
  - DEMENTIA [None]
  - GASTROOESOPHAGEAL REFLUX DISEASE [None]
  - ABASIA [None]
  - TRANSIENT ISCHAEMIC ATTACK [None]
  - TINNITUS [None]
  - OSTEOARTHRITIS [None]
  - ANAEMIA [None]
  - ARRHYTHMIA [None]
  - ESCHERICHIA INFECTION [None]
  - HEADACHE [None]
  - PEPTIC ULCER [None]
  - NEUROPATHY PERIPHERAL [None]
  - DEPRESSION [None]
  - CORONARY ARTERY DISEASE [None]
  - OESOPHAGEAL ULCER HAEMORRHAGE [None]
  - MYOCARDIAL INFARCTION [None]
  - IRON DEFICIENCY ANAEMIA [None]
  - HYPERTENSION [None]
  - PNEUMONIA [None]
  - DIVERTICULITIS [None]
  - DELIRIUM [None]
  - CONTUSION [None]
  - CEREBROVASCULAR ACCIDENT [None]
  - PARKINSON'S DISEASE [None]
  - RENAL FAILURE CHRONIC [None]
  - VENOUS INSUFFICIENCY [None]
  - CATARACT [None]
  - CHEST INJURY [None]
  - FEMUR FRACTURE [None]
  - LUMBAR SPINAL STENOSIS [None]
  - GASTRITIS HAEMORRHAGIC [None]
  - URINARY TRACT INFECTION [None]
  - FALL [None]
  - DYSPHAGIA [None]
  - APPENDIX DISORDER [None]
  - RENAL DISORDER [None]
  - OSTEOPENIA [None]
  - IRRITABLE BOWEL SYNDROME [None]
  - HYPERLIPIDAEMIA [None]
  - DIZZINESS [None]
  - GLUCOSE TOLERANCE IMPAIRED [None]
